FAERS Safety Report 13919679 (Version 1)
Quarter: 2017Q3

REPORT INFORMATION
  Report Type: Spontaneous
  Country: US (occurrence: US)
  Receive Date: 20170829
  Receipt Date: 20170829
  Transmission Date: 20171127
  Serious: Yes (Life-Threatening, Hospitalization, Disabling)
  Sender: FDA-Public Use
  Company Number: None

PATIENT
  Sex: Female
  Weight: 93.15 kg

DRUGS (5)
  1. DAPTOMYCIN, IV [Suspect]
     Active Substance: DAPTOMYCIN
     Indication: POST PROCEDURAL INFECTION
  2. LEVOTHYROXINE. [Concomitant]
     Active Substance: LEVOTHYROXINE
  3. PROBIOTIC [Concomitant]
     Active Substance: PROBIOTICS NOS
  4. DAPTOMYCIN, IV [Suspect]
     Active Substance: DAPTOMYCIN
     Indication: KNEE ARTHROPLASTY
  5. LISINOPRIL. [Concomitant]
     Active Substance: LISINOPRIL

REACTIONS (8)
  - Fluid retention [None]
  - Chronic kidney disease [None]
  - Blood glucose increased [None]
  - Renal injury [None]
  - Acute kidney injury [None]
  - Hypertension [None]
  - Rhabdomyolysis [None]
  - Neuropathy peripheral [None]

NARRATIVE: CASE EVENT DATE: 20150725
